FAERS Safety Report 11630922 (Version 2)
Quarter: 2015Q4

REPORT INFORMATION
  Report Type: Spontaneous
  Country: DE (occurrence: DE)
  Receive Date: 20151014
  Receipt Date: 20151028
  Transmission Date: 20160304
  Serious: Yes (Death, Other)
  Sender: FDA-Public Use
  Company Number: DE-REGENERON PHARMACEUTICALS, INC.-2015-12985

PATIENT

DRUGS (8)
  1. PANTOPRAZOLE [Concomitant]
     Active Substance: PANTOPRAZOLE SODIUM
  2. EYLEA [Suspect]
     Active Substance: AFLIBERCEPT
     Dosage: SECOND INJECTION
     Dates: start: 20150717
  3. INSPRA [Concomitant]
     Active Substance: EPLERENONE
  4. ALLOPURINOL. [Concomitant]
     Active Substance: ALLOPURINOL
  5. MARCUMAR [Concomitant]
     Active Substance: PHENPROCOUMON
  6. EYLEA [Suspect]
     Active Substance: AFLIBERCEPT
     Indication: MACULAR DEGENERATION
     Dosage: FIRST INJECTION
  7. CARVEDILOL. [Concomitant]
     Active Substance: CARVEDILOL
  8. TORASEMID [Concomitant]
     Active Substance: TORSEMIDE

REACTIONS (4)
  - Skin discolouration [Unknown]
  - Death [Fatal]
  - Erythema [Unknown]
  - Injection site discolouration [Unknown]

NARRATIVE: CASE EVENT DATE: 20150718
